FAERS Safety Report 19784595 (Version 1)
Quarter: 2021Q3

REPORT INFORMATION
  Report Type: Report from Study
  Country: US (occurrence: US)
  Receive Date: 20210903
  Receipt Date: 20210903
  Transmission Date: 20211014
  Serious: Yes (Hospitalization)
  Sender: FDA-Public Use
  Company Number: US-ROCHE-2689303

PATIENT
  Sex: Female
  Weight: 68.8 kg

DRUGS (21)
  1. CETRIZINE [Concomitant]
     Active Substance: CETIRIZINE HYDROCHLORIDE
     Indication: RHINITIS ALLERGIC
     Dates: start: 20200603
  2. FLUTICASONE. [Concomitant]
     Active Substance: FLUTICASONE
     Route: 045
     Dates: start: 20200909
  3. CARBOPLATIN. [Concomitant]
     Active Substance: CARBOPLATIN
  4. ZOSYN [Concomitant]
     Active Substance: PIPERACILLIN SODIUM\TAZOBACTAM SODIUM
  5. LIDOCAINE AND PRILOCAINE [Concomitant]
     Active Substance: LIDOCAINE\PRILOCAINE
     Dates: start: 20200206
  6. BENZONATATE. [Concomitant]
     Active Substance: BENZONATATE
     Indication: COUGH
     Dates: start: 20200422
  7. COBIMETINIB. [Suspect]
     Active Substance: COBIMETINIB
     Indication: NON-SMALL CELL LUNG CANCER
     Dosage: MOST RECENT DOSE OF COBIMETINIB PRIOR TO THE EVENT ONSET WAS ON 09/SEP/2020.
     Route: 048
     Dates: start: 20200811
  8. ESTRADIOL. [Concomitant]
     Active Substance: ESTRADIOL
     Indication: DYSPAREUNIA
     Dosage: 0.1 MG/ GRAM
     Dates: start: 20190109
  9. OXYCODONE [Concomitant]
     Active Substance: OXYCODONE
     Indication: PAIN
     Dates: start: 20200626
  10. TRIAMCINOLONE [Concomitant]
     Active Substance: TRIAMCINOLONE
     Indication: RASH
     Dates: start: 20200717, end: 20200909
  11. GABAPENTIN. [Concomitant]
     Active Substance: GABAPENTIN
     Indication: PAIN
     Dates: start: 20200711
  12. PEMETREXED. [Concomitant]
     Active Substance: PEMETREXED
  13. NIVOLUMAB [Concomitant]
     Active Substance: NIVOLUMAB
  14. SITRAVATINIB. [Concomitant]
     Active Substance: SITRAVATINIB
  15. APIXABAN [Concomitant]
     Active Substance: APIXABAN
     Dates: start: 20200413, end: 20200913
  16. HYDROCODONE BITART. AND HOMATROPINE METHYLBR. [Concomitant]
     Indication: COUGH
     Dosage: 5?1.5MG/5 MILLILITER;
     Dates: start: 20200226
  17. PROCHLORPERAZINE. [Concomitant]
     Active Substance: PROCHLORPERAZINE
     Indication: NAUSEA
     Dates: start: 20180808
  18. NAPROXEN SODIUM. [Concomitant]
     Active Substance: NAPROXEN SODIUM
     Indication: HYPERTROPHIC OSTEOARTHROPATHY
     Dates: start: 20191030
  19. DEXTROMETHORPHAN HYDROBROMIDE;GUAIFENESIN [Concomitant]
     Indication: COUGH
     Dates: start: 20200617
  20. TUMS [Concomitant]
     Active Substance: CALCIUM CARBONATE
     Indication: GASTROOESOPHAGEAL REFLUX DISEASE
     Dates: start: 20200805
  21. PEMBROLIZUMAB. [Concomitant]
     Active Substance: PEMBROLIZUMAB

REACTIONS (1)
  - Hypoxia [Recovering/Resolving]

NARRATIVE: CASE EVENT DATE: 20200923
